FAERS Safety Report 16632952 (Version 2)
Quarter: 2019Q4

REPORT INFORMATION
  Report Type: Report from Study
  Country: US (occurrence: US)
  Receive Date: 20190725
  Receipt Date: 20191223
  Transmission Date: 20200122
  Serious: Yes (Hospitalization)
  Sender: FDA-Public Use
  Company Number: US-ACTELION-A-NJ2017-155586

PATIENT
  Age: 67 Year
  Sex: Male

DRUGS (10)
  1. UPTRAVI [Suspect]
     Active Substance: SELEXIPAG
     Dosage: 1400 MCG, BID
     Route: 048
     Dates: start: 20170501
  2. OPSUMIT [Suspect]
     Active Substance: MACITENTAN
     Indication: PULMONARY ARTERIAL HYPERTENSION
     Dosage: 10 MG, QD
     Route: 048
     Dates: start: 20160812, end: 20191212
  3. SILDENAFIL. [Concomitant]
     Active Substance: SILDENAFIL
  4. UPTRAVI [Suspect]
     Active Substance: SELEXIPAG
     Indication: PULMONARY ARTERIAL HYPERTENSION
     Dosage: 800 MCG, BID
     Route: 048
     Dates: start: 20170502, end: 20171119
  5. LANTUS [Concomitant]
     Active Substance: INSULIN GLARGINE
  6. DIGOXIN. [Concomitant]
     Active Substance: DIGOXIN
  7. UPTRAVI [Suspect]
     Active Substance: SELEXIPAG
     Dosage: 200 MCG, BID
     Route: 048
     Dates: start: 20171120
  8. ASPIRIN. [Concomitant]
     Active Substance: ASPIRIN
  9. FUROSEMIDE. [Concomitant]
     Active Substance: FUROSEMIDE
  10. HYDRALAZINE [Concomitant]
     Active Substance: HYDRALAZINE HYDROCHLORIDE

REACTIONS (10)
  - Dyspnoea exertional [Unknown]
  - Dysstasia [Not Recovered/Not Resolved]
  - Muscular weakness [Not Recovered/Not Resolved]
  - Insomnia [Unknown]
  - Oedema peripheral [Not Recovered/Not Resolved]
  - Catheter placement [Not Recovered/Not Resolved]
  - Weight increased [Unknown]
  - Hospice care [Unknown]
  - Pain in extremity [Unknown]
  - Joint stiffness [Recovered/Resolved]

NARRATIVE: CASE EVENT DATE: 20171101
